FAERS Safety Report 9860024 (Version 2)
Quarter: 2014Q1

REPORT INFORMATION
  Report Type: Spontaneous
  Country: JP (occurrence: JP)
  Receive Date: 20140131
  Receipt Date: 20140206
  Transmission Date: 20141002
  Serious: Yes (Hospitalization, Other)
  Sender: FDA-Public Use
  Company Number: JP-ABBVIE-14P-087-1196795-00

PATIENT
  Age: 77 Year
  Sex: Female

DRUGS (7)
  1. LANSAP 400 CAPSULE [Suspect]
     Indication: HELICOBACTER INFECTION
     Route: 048
     Dates: start: 201311
  2. LANSOPRAZOLE [Suspect]
     Indication: HELICOBACTER INFECTION
     Route: 048
     Dates: start: 201311
  3. LANSOPRAZOLE [Suspect]
     Indication: HELICOBACTER INFECTION
     Route: 048
     Dates: start: 201311
  4. TAKEPRON [Suspect]
     Indication: PRODUCT USED FOR UNKNOWN INDICATION
     Route: 042
  5. TAKEPRON [Suspect]
     Indication: PRODUCT USED FOR UNKNOWN INDICATION
     Route: 048
  6. AMOXICILLIN [Suspect]
     Indication: HELICOBACTER INFECTION
     Route: 048
     Dates: start: 201311
  7. AMINOLEBAN [Suspect]
     Indication: PRODUCT USED FOR UNKNOWN INDICATION
     Route: 050
     Dates: end: 20140124

REACTIONS (3)
  - Hypernatraemia [Recovered/Resolved]
  - Ketoacidosis [Recovered/Resolved]
  - Diabetes insipidus [Recovered/Resolved]
